FAERS Safety Report 5391470-3 (Version None)
Quarter: 2007Q3

REPORT INFORMATION
  Report Type: 
  Country: None (occurrence: None)
  Receive Date: 20070719
  Receipt Date: 20070711
  Transmission Date: 20080115
  Serious: No
  Sender: FDA-Public Use
  Company Number: GR-ASTRAZENECA-2007SE03967

PATIENT
  Age: 50 Year
  Sex: Male

DRUGS (5)
  1. SEROQUEL [Suspect]
     Indication: BIPOLAR DISORDER
     Route: 048
     Dates: start: 20070101, end: 20070705
  2. SEROQUEL [Suspect]
     Route: 048
     Dates: start: 20070706
  3. DEPAKENE [Concomitant]
     Route: 048
     Dates: start: 20070501
  4. CLOPIXOL [Concomitant]
     Route: 030
  5. CLOPIXOL [Concomitant]
     Route: 048

REACTIONS (2)
  - LEUKOPENIA [None]
  - NEUTROPENIA [None]
